FAERS Safety Report 5744689-3 (Version None)
Quarter: 2008Q2

REPORT INFORMATION
  Report Type: 
  Country: None (occurrence: None)
  Receive Date: 20080520
  Receipt Date: 20080509
  Transmission Date: 20081010
  Serious: Yes (Other)
  Sender: FDA-Public Use
  Company Number: BR-PFIZER INC-2008041013

PATIENT
  Sex: Female
  Weight: 60 kg

DRUGS (5)
  1. LIPITOR [Suspect]
     Indication: BLOOD CHOLESTEROL INCREASED
     Route: 048
  2. FRONTAL XR [Suspect]
     Route: 048
  3. WARFARIN [Concomitant]
  4. ANCORON [Concomitant]
  5. IRBESARTAN [Concomitant]

REACTIONS (2)
  - ATRIAL FIBRILLATION [None]
  - BRADYPHRENIA [None]
